FAERS Safety Report 9806401 (Version 1)
Quarter: 2014Q1

REPORT INFORMATION
  Report Type: Spontaneous
  Country: GB (occurrence: None)
  Receive Date: 20140107
  Receipt Date: 20140107
  Transmission Date: 20141002
  Serious: Yes (Death, Life-Threatening, Hospitalization)
  Sender: FDA-Public Use
  Company Number: AUR-APL-2014-00059

PATIENT
  Age: 61 Year
  Sex: Female

DRUGS (8)
  1. AMOXICILLIN + CLAVULANIC ACID [Suspect]
     Indication: ESCHERICHIA SEPSIS
     Route: 048
     Dates: start: 20130930, end: 20131004
  2. FUROSEMIDE (FUROSEMIDE) [Concomitant]
  3. LACTULOSE (LACTULOSE) [Concomitant]
  4. PIPERACILLIN AND TAZOBACTAM (PIP/TAZO) [Concomitant]
  5. SODIUM BICARBONATE (SODIUM BICARBONATE) [Concomitant]
  6. SPIROLACTONE (SPIRONOLACTONE) [Concomitant]
  7. TIOTROPIUM (TIOTROPIUM) (TIOTROPIUM) [Concomitant]
  8. URSODEOXYCHOLIC ACID (URSODEOXYCHOLIC ACID) [Concomitant]

REACTIONS (3)
  - Hepatic cirrhosis [None]
  - General physical health deterioration [None]
  - Malaise [None]
